FAERS Safety Report 7512425-6 (Version None)
Quarter: 2011Q2

REPORT INFORMATION
  Report Type: 
  Country: None (occurrence: None)
  Receive Date: 20110531
  Receipt Date: 20110523
  Transmission Date: 20111010
  Serious: Yes (Other)
  Sender: FDA-Public Use
  Company Number: FI-ROCHE-774344

PATIENT
  Sex: Female

DRUGS (4)
  1. AZATHIOPRINE [Concomitant]
     Dates: end: 20100901
  2. MIRCERA [Suspect]
     Route: 065
     Dates: start: 20100101
  3. MYFORTIC [Suspect]
     Indication: WEGENER'S GRANULOMATOSIS
     Dosage: DOSE: MINIMAL DOSE (NOS)
     Route: 065
     Dates: start: 20100901, end: 20110401
  4. ARANESP [Concomitant]
     Dosage: DOSE: 100
     Route: 058
     Dates: start: 20110510

REACTIONS (2)
  - BONE MARROW FAILURE [None]
  - ANAEMIA [None]
